FAERS Safety Report 9777647 (Version 1)
Quarter: 2013Q4

REPORT INFORMATION
  Report Type: Spontaneous
  Country: DE (occurrence: DE)
  Receive Date: 20131223
  Receipt Date: 20131223
  Transmission Date: 20140711
  Serious: Yes (Death, Other)
  Sender: FDA-Public Use
  Company Number: DE-ROCHE-1317291

PATIENT
  Age: 55 Year
  Sex: Female

DRUGS (1)
  1. KADCYLA [Suspect]
     Indication: NEOPLASM MALIGNANT
     Route: 065
     Dates: start: 20130902, end: 20130902

REACTIONS (2)
  - Malignant neoplasm progression [Fatal]
  - Liver function test abnormal [Unknown]
